FAERS Safety Report 11143144 (Version 3)
Quarter: 2015Q3

REPORT INFORMATION
  Report Type: Spontaneous
  Country: US (occurrence: US)
  Receive Date: 20150528
  Receipt Date: 20150924
  Transmission Date: 20151125
  Serious: Yes (Hospitalization)
  Sender: FDA-Public Use
  Company Number: US-PFIZER INC-2015172324

PATIENT
  Age: 65 Year
  Sex: Female
  Weight: 59.3 kg

DRUGS (29)
  1. LANTUS SOLOSTAR [Concomitant]
     Active Substance: INSULIN GLARGINE
     Dosage: 15 IU, 1X/DAY (UNDER THE SKIN AT BEDTIME)
     Route: 058
     Dates: start: 20141125, end: 20141128
  2. LANTUS SOLOSTAR [Concomitant]
     Active Substance: INSULIN GLARGINE
     Dosage: 16 IU, 1X/DAY (UNDER THE SKIN AT BEDTIME)
     Route: 058
     Dates: start: 20140529, end: 20141125
  3. TRILEPTAL [Concomitant]
     Active Substance: OXCARBAZEPINE
     Dosage: UNK
  4. LANTUS SOLOSTAR [Concomitant]
     Active Substance: INSULIN GLARGINE
     Dosage: 20 IU, 1X/DAY (AT BEDTIME)
     Dates: start: 20150508, end: 20150610
  5. KLONOPIN [Concomitant]
     Active Substance: CLONAZEPAM
     Dosage: 1 MG, 3X/DAY
     Route: 048
     Dates: start: 20150324, end: 20150622
  6. LYRICA [Concomitant]
     Active Substance: PREGABALIN
     Dosage: 75 MG, 1X/DAY (EVERY MORNING)
     Route: 048
     Dates: start: 20141119, end: 20150226
  7. LANTUS SOLOSTAR [Concomitant]
     Active Substance: INSULIN GLARGINE
     Dosage: 15 IU, 1X/DAY (UNDER THE SKIN AT BEDTIME)
     Route: 058
     Dates: start: 20141128, end: 20150204
  8. ANTIVERT [Concomitant]
     Active Substance: MECLIZINE HYDROCHLORIDE
     Indication: DIZZINESS
     Dosage: 25 MG, 3X/DAY
     Route: 048
     Dates: start: 20150219
  9. LIPITOR [Suspect]
     Active Substance: ATORVASTATIN CALCIUM
     Dosage: 0.5 DF, 1X/DAY
     Route: 048
  10. HUMALOG KWIKPEN [Concomitant]
     Active Substance: INSULIN LISPRO
     Dosage: 8 IU, 3X/DAY (8 UNITS BEFORE 3 DAILY MEALS)
     Dates: start: 20150508, end: 20150605
  11. TRILEPTAL [Concomitant]
     Active Substance: OXCARBAZEPINE
     Dosage: 300 MG, 3X/DAY (1 IN AM AND 2 IN PM)
     Dates: start: 20141119, end: 20150417
  12. LAC-HYDRIN [Concomitant]
     Active Substance: AMMONIUM LACTATE
     Dosage: 12 %, 2X/DAY
     Route: 061
     Dates: start: 20150406
  13. PROVENTIL HFA [Concomitant]
     Active Substance: ALBUTEROL SULFATE
     Dosage: 2 DF, EVERY 4 HRS (AS NEEDED)
     Route: 055
     Dates: start: 20150204
  14. LYRICA [Concomitant]
     Active Substance: PREGABALIN
     Dosage: 150 MG, 1X/DAY (EVERY EVENING)
     Route: 048
     Dates: start: 20150521, end: 20150630
  15. TRILEPTAL [Concomitant]
     Active Substance: OXCARBAZEPINE
     Dosage: 300 MG, 3X/DAY (1 IN AM AND 2 IN PM)
     Dates: start: 20150417
  16. BACTROBAN [Concomitant]
     Active Substance: MUPIROCIN\MUPIROCIN CALCIUM
     Dosage: UNK UNK, 3X/DAY
     Route: 061
     Dates: start: 20150413, end: 20150630
  17. KLONOPIN [Concomitant]
     Active Substance: CLONAZEPAM
     Dosage: 1 MG, 3X/DAY
     Route: 048
     Dates: start: 20141125, end: 20150113
  18. VOLTAREN [Concomitant]
     Active Substance: DICLOFENAC SODIUM
     Dosage: 1 %, UNK (APPLY TO LEFT BUNION 2-3 TIMES DAILY FOR PAIN)
     Route: 061
     Dates: start: 20141125, end: 20141209
  19. GLUCOPHAGE [Concomitant]
     Active Substance: METFORMIN HYDROCHLORIDE
     Dosage: 1000 MG, 2X/DAY
     Route: 048
     Dates: start: 20130917, end: 20141125
  20. GLUCOPHAGE [Concomitant]
     Active Substance: METFORMIN HYDROCHLORIDE
     Dosage: 1000 MG, 2X/DAY
     Route: 048
     Dates: start: 20141125, end: 20141209
  21. LYRICA [Concomitant]
     Active Substance: PREGABALIN
     Dosage: 150 MG, 1X/DAY (EVERY EVENING)
     Route: 048
     Dates: start: 20141119, end: 20150226
  22. LYRICA [Concomitant]
     Active Substance: PREGABALIN
     Dosage: 75 MG, 1X/DAY (EVERY MORNING)
     Route: 048
     Dates: start: 20150521
  23. AMLACTIN [Concomitant]
     Active Substance: AMMONIUM LACTATE
     Dosage: 12 %, 2X/DAY (FOR THUMBS)
     Route: 061
     Dates: start: 20150406
  24. WELLBUTRIN XL [Concomitant]
     Active Substance: BUPROPION HYDROCHLORIDE
     Dosage: 300 MG, 1X/DAY
     Route: 048
     Dates: start: 20150324, end: 20150622
  25. VOLTAREN [Concomitant]
     Active Substance: DICLOFENAC SODIUM
     Indication: PAIN
     Dosage: 1 %, UNK (APPLY TO LEFT BUNION 2-3 TIMES DAILY FOR PAIN)
     Route: 061
     Dates: start: 20140613, end: 20141125
  26. KLONOPIN [Concomitant]
     Active Substance: CLONAZEPAM
     Dosage: 1 MG, 3X/DAY
     Route: 048
     Dates: start: 20141119, end: 20141125
  27. PROVENTIL HFA [Concomitant]
     Active Substance: ALBUTEROL SULFATE
     Indication: WHEEZING
     Dosage: 2 DF, EVERY 4 HRS (AS NEEDED)
     Route: 055
     Dates: start: 20131112, end: 20141125
  28. PROVENTIL HFA [Concomitant]
     Active Substance: ALBUTEROL SULFATE
     Dosage: 2 DF, EVERY 4 HRS (AS NEEDED)
     Route: 055
     Dates: start: 20141125, end: 20150204
  29. VOLTAREN [Concomitant]
     Active Substance: DICLOFENAC SODIUM
     Dosage: 1 %, UNK (APPLY TO LEFT BUNION 2-3 TIMES DAILY FOR PAIN)
     Route: 061
     Dates: start: 20141209

REACTIONS (2)
  - Blood sodium decreased [Unknown]
  - Appetite disorder [Unknown]

NARRATIVE: CASE EVENT DATE: 20150502
